FAERS Safety Report 18597009 (Version 1)
Quarter: 2020Q4

REPORT INFORMATION
  Report Type: Spontaneous
  Country: RU (occurrence: RU)
  Receive Date: 20201209
  Receipt Date: 20201209
  Transmission Date: 20210114
  Serious: Yes (Life-Threatening, Other)
  Sender: FDA-Public Use
  Company Number: RU-SA-2020SA351336

PATIENT

DRUGS (3)
  1. INSUMAN BASAL GT [Concomitant]
     Active Substance: INSULIN HUMAN
     Indication: HYPERGLYCAEMIA
     Dosage: UNKNOWN
     Route: 058
     Dates: start: 20191010
  2. LANTUS [Suspect]
     Active Substance: INSULIN GLARGINE
     Indication: TYPE 2 DIABETES MELLITUS
     Dosage: 4IU -16IU/40 IU IN A DAY
     Route: 058
     Dates: start: 20200619, end: 20200630
  3. NOVORAPID [Concomitant]
     Active Substance: INSULIN ASPART
     Indication: HYPERGLYCAEMIA
     Dosage: UNKNOWN
     Route: 058
     Dates: start: 20191010

REACTIONS (1)
  - Loss of consciousness [Recovering/Resolving]
